FAERS Safety Report 21669101 (Version 1)
Quarter: 2022Q4

REPORT INFORMATION
  Report Type: Spontaneous
  Country: IT (occurrence: IT)
  Receive Date: 20221201
  Receipt Date: 20221201
  Transmission Date: 20230113
  Serious: Yes (Life-Threatening, Other)
  Sender: FDA-Public Use
  Company Number: IT-PFIZER INC-PV202200073643

PATIENT
  Age: 44 Year
  Sex: Male

DRUGS (3)
  1. LINEZOLID [Suspect]
     Active Substance: LINEZOLID
     Indication: Meningitis bacterial
     Dosage: 1200 MILLIGRAM, QD (600 MG EVERY 12 HOURS)
     Route: 065
     Dates: start: 20220105, end: 20220109
  2. AVIBACTAM SODIUM\CEFTAZIDIME [Suspect]
     Active Substance: AVIBACTAM SODIUM\CEFTAZIDIME
     Indication: Meningitis bacterial
     Dosage: 2.5 G EVERY 8 HRS(EXTENDED INFUSION 3 HRS PLUS)
     Route: 065
     Dates: start: 20220105, end: 20220129
  3. FOSFOMYCIN [Concomitant]
     Active Substance: FOSFOMYCIN
     Indication: Meningitis bacterial
     Dosage: 24 GRAM, QD, (6 G, 4X/DAY (EVERY 6 HOURS)
     Route: 065
     Dates: start: 20220105

REACTIONS (1)
  - Pathogen resistance [Unknown]
